FAERS Safety Report 13134290 (Version 1)
Quarter: 2017Q1

REPORT INFORMATION
  Report Type: Spontaneous
  Country: US (occurrence: US)
  Receive Date: 20170120
  Receipt Date: 20170120
  Transmission Date: 20170428
  Serious: Yes (Other)
  Sender: FDA-Public Use
  Company Number: US-PFIZER INC-2017016332

PATIENT
  Sex: Female

DRUGS (1)
  1. LYRICA [Suspect]
     Active Substance: PREGABALIN
     Indication: FIBROMYALGIA
     Dosage: UNK

REACTIONS (6)
  - Therapeutic response unexpected [Unknown]
  - Pre-existing condition improved [Unknown]
  - Intentional self-injury [Unknown]
  - Logorrhoea [Unknown]
  - Condition aggravated [Unknown]
  - Drug effect incomplete [Unknown]
